FAERS Safety Report 13615308 (Version 1)
Quarter: 2017Q2

REPORT INFORMATION
  Report Type: Spontaneous
  Country: US (occurrence: US)
  Receive Date: 20170605
  Receipt Date: 20170605
  Transmission Date: 20170830
  Serious: No
  Sender: FDA-Public Use
  Company Number: None

PATIENT
  Age: 58 Year
  Sex: Male
  Weight: 78.8 kg

DRUGS (1)
  1. THIOTHIXENE. [Suspect]
     Active Substance: THIOTHIXENE
     Dates: start: 20040619, end: 20130424

REACTIONS (2)
  - Parkinsonism [None]
  - Tardive dyskinesia [None]

NARRATIVE: CASE EVENT DATE: 20130424
